FAERS Safety Report 20494754 (Version 2)
Quarter: 2022Q1

REPORT INFORMATION
  Report Type: Report from Study
  Country: US (occurrence: US)
  Receive Date: 20220221
  Receipt Date: 20220301
  Transmission Date: 20220424
  Serious: Yes (Hospitalization)
  Sender: FDA-Public Use
  Company Number: US-CELGENE-USA-20220203930

PATIENT
  Age: 57 Year
  Sex: Male

DRUGS (14)
  1. ROMIDEPSIN [Suspect]
     Active Substance: ROMIDEPSIN
     Indication: Allogenic stem cell transplantation
     Route: 041
     Dates: start: 20210512, end: 20210515
  2. ROMIDEPSIN [Suspect]
     Active Substance: ROMIDEPSIN
     Indication: Stem cell transplant
     Route: 041
     Dates: start: 20210820, end: 20210917
  3. FLUDARABINE [Concomitant]
     Active Substance: FLUDARABINE PHOSPHATE
     Indication: Product used for unknown indication
     Route: 065
     Dates: start: 20210512, end: 20210515
  4. BUSULFAN [Concomitant]
     Active Substance: BUSULFAN
     Indication: Product used for unknown indication
     Route: 065
     Dates: start: 20210512, end: 20210515
  5. LAPINE T-LYMPHOCYTE IMMUNE GLOBULIN [Concomitant]
     Active Substance: LAPINE T-LYMPHOCYTE IMMUNE GLOBULIN
     Indication: Product used for unknown indication
     Route: 065
     Dates: start: 20210515, end: 20210517
  6. METHOTREXATE [Concomitant]
     Active Substance: METHOTREXATE
     Indication: Product used for unknown indication
     Route: 065
     Dates: start: 20210519, end: 20210529
  7. VALACYCLOVIR [Concomitant]
     Active Substance: VALACYCLOVIR HYDROCHLORIDE
     Indication: Antiviral prophylaxis
     Route: 065
  8. LETERMOVIR [Concomitant]
     Active Substance: LETERMOVIR
     Indication: Antiviral prophylaxis
     Route: 065
  9. POSACONAZOLE [Concomitant]
     Active Substance: POSACONAZOLE
     Indication: Antifungal prophylaxis
     Route: 065
  10. ATOVAQUONE [Concomitant]
     Active Substance: ATOVAQUONE
     Indication: Antifungal prophylaxis
     Route: 065
  11. PLAVIX [Concomitant]
     Active Substance: CLOPIDOGREL BISULFATE
     Indication: Product used for unknown indication
     Route: 065
     Dates: start: 202111
  12. PREDNISONE [Concomitant]
     Active Substance: PREDNISONE
     Indication: Inflammatory bowel disease
     Dosage: 15 MILLIGRAM
     Route: 065
  13. TACROLIMUS [Concomitant]
     Active Substance: TACROLIMUS
     Indication: Graft versus host disease
     Route: 065
  14. TACROLIMUS [Concomitant]
     Active Substance: TACROLIMUS
     Route: 065
     Dates: start: 20210516

REACTIONS (3)
  - Febrile neutropenia [Recovered/Resolved]
  - Sepsis [Recovering/Resolving]
  - Cellulitis [Recovering/Resolving]

NARRATIVE: CASE EVENT DATE: 20220209
